FAERS Safety Report 4398481-5 (Version None)
Quarter: 2004Q3

REPORT INFORMATION
  Report Type: 
  Country: None (occurrence: None)
  Receive Date: 20040714
  Receipt Date: 20040714
  Transmission Date: 20050211
  Serious: Yes (Hospitalization)
  Sender: FDA-Public Use
  Company Number: None

PATIENT
  Age: 47 Year
  Sex: Female

DRUGS (2)
  1. TRAMADOL HCL [Suspect]
     Dosage: 50 MG Q 6 HRS PRN
  2. PROZAC [Suspect]
     Dosage: 40 MG PO QD
     Route: 048

REACTIONS (1)
  - SEROTONIN SYNDROME [None]
